FAERS Safety Report 7902463-3 (Version None)
Quarter: 2011Q4

REPORT INFORMATION
  Report Type: 
  Country: None (occurrence: None)
  Receive Date: 20111108
  Receipt Date: 20100518
  Transmission Date: 20120403
  Serious: Yes (Hospitalization)
  Sender: FDA-Public Use
  Company Number: BY-UCBSA-011305

PATIENT
  Age: 29 Year
  Sex: Male
  Weight: 73 kg

DRUGS (2)
  1. MESALAMINE [Concomitant]
     Indication: CROHN'S DISEASE
     Dates: start: 20070725
  2. CERTOLIZUMAB PEGOL [Suspect]
     Indication: CROHN'S DISEASE
     Dosage: CONTINUED BUT ADMINISTRATION POSTPONED
     Route: 058
     Dates: start: 20050218, end: 20100430

REACTIONS (1)
  - FOCAL SEGMENTAL GLOMERULOSCLEROSIS [None]
